FAERS Safety Report 7640973-7 (Version None)
Quarter: 2011Q3

REPORT INFORMATION
  Report Type: 
  Country: None (occurrence: None)
  Receive Date: 20110727
  Receipt Date: 20110727
  Transmission Date: 20111222
  Serious: No
  Sender: FDA-Public Use
  Company Number: None

PATIENT
  Age: 83 Year
  Sex: Female
  Weight: 77.1115 kg

DRUGS (1)
  1. PLAVIX [Suspect]
     Indication: CAROTID ARTERY STENT INSERTION
     Dosage: 75MG DAILY
     Dates: start: 20110604, end: 20110706

REACTIONS (7)
  - DYSPNOEA [None]
  - DIZZINESS [None]
  - BALANCE DISORDER [None]
  - SKIN DISCOLOURATION [None]
  - HEADACHE [None]
  - ASTHENIA [None]
  - ABDOMINAL PAIN UPPER [None]
